FAERS Safety Report 9378144 (Version 1)
Quarter: 2013Q2

REPORT INFORMATION
  Report Type: Spontaneous
  Country: GB (occurrence: None)
  Receive Date: 20130625
  Receipt Date: 20130625
  Transmission Date: 20140414
  Serious: Yes (Other)
  Sender: FDA-Public Use
  Company Number: GER/UKI/13/0030053

PATIENT
  Age: 59 Year
  Sex: Female

DRUGS (2)
  1. TERBINAFINE (TERBINAFINE) [Suspect]
     Indication: FUNGAL INFECTION
     Dates: start: 201203, end: 201206
  2. BECLOMETHASONE (BECLOMETASONE) [Concomitant]

REACTIONS (3)
  - Pain in extremity [None]
  - Paraesthesia [None]
  - Activities of daily living impaired [None]
